FAERS Safety Report 7151766-1 (Version None)
Quarter: 2010Q4

REPORT INFORMATION
  Report Type: 
  Country: None (occurrence: None)
  Receive Date: 20101210
  Receipt Date: 20101130
  Transmission Date: 20110411
  Serious: Yes (Hospitalization)
  Sender: FDA-Public Use
  Company Number: FR-SANOFI-AVENTIS-2010SA072522

PATIENT
  Age: 85 Year
  Sex: Female

DRUGS (9)
  1. FLUDEX [Suspect]
     Indication: HYPERTENSION
     Route: 048
  2. COVERSYL /FRA/ [Interacting]
     Indication: HYPERTENSION
     Route: 048
  3. SELOKEN [Interacting]
     Indication: HYPERTENSION
     Route: 048
  4. HYDROCHLOROTHIAZIDE/OLMESARTAN MEDOXOMIL [Interacting]
     Indication: HYPERTENSION
     Route: 048
     Dates: end: 20100708
  5. KARDEGIC [Concomitant]
     Route: 065
  6. CALTRATE [Concomitant]
     Route: 065
  7. MOPRAL [Concomitant]
     Route: 065
  8. CARBOSYMAG /FRA/ [Concomitant]
     Route: 065
  9. FOSAMAX [Concomitant]
     Route: 065

REACTIONS (3)
  - DRUG INTERACTION [None]
  - FALL [None]
  - ORTHOSTATIC HYPOTENSION [None]
